FAERS Safety Report 9166941 (Version 1)
Quarter: 2013Q1

REPORT INFORMATION
  Report Type: Spontaneous
  Country: FR (occurrence: FR)
  Receive Date: 20130317
  Receipt Date: 20130317
  Transmission Date: 20140127
  Serious: Yes (Hospitalization)
  Sender: FDA-Public Use
  Company Number: FR-B.I. PHARMACEUTICALS,INC./RIDGEFIELD-2013-FF-00690FF

PATIENT
  Age: 84 Year
  Sex: Male

DRUGS (15)
  1. SPIRIVA [Suspect]
     Dosage: 18 MCG
     Route: 055
     Dates: end: 20130131
  2. DEPAKOTE [Suspect]
     Dosage: 750 MG
     Route: 048
     Dates: start: 20120930, end: 20130111
  3. DEPAKOTE [Suspect]
     Dosage: 500 MG
     Route: 048
     Dates: end: 20130113
  4. DEPAKOTE [Suspect]
     Dosage: 250 MG
     Route: 048
     Dates: end: 20130115
  5. COUMADINE [Suspect]
     Indication: ATRIAL FIBRILLATION
     Dosage: 2 MG
     Route: 048
     Dates: start: 20120930, end: 20130115
  6. AMOXICILLINE/ACIDE CLAVULANIQUE [Suspect]
     Dosage: 1 G/200 MG
     Route: 042
     Dates: start: 20121230, end: 20130107
  7. CALCIDIA [Suspect]
     Route: 048
     Dates: start: 20121230, end: 20130109
  8. TERBUTALINE [Concomitant]
     Route: 055
     Dates: end: 20130107
  9. TERBUTALINE ARROW [Concomitant]
     Route: 055
     Dates: start: 20130131
  10. IPRATROPIUM ARROW [Concomitant]
     Dosage: 0.5 MG/2 ML
     Route: 055
     Dates: end: 20130106
  11. IPRATROPIUM ARROW [Concomitant]
     Dosage: 0.5 MG/2 ML
     Route: 055
     Dates: start: 20130131
  12. LASILIX [Concomitant]
     Dosage: 80 MG
     Dates: start: 20121231, end: 20130105
  13. TIAPRIDAL [Concomitant]
     Route: 048
     Dates: start: 20130102, end: 20130109
  14. TIAPRIDAL [Concomitant]
     Route: 048
     Dates: start: 20130125
  15. BISOCE [Concomitant]
     Route: 048
     Dates: start: 20120131

REACTIONS (1)
  - Thrombocytopenia [Recovered/Resolved]
